FAERS Safety Report 9295006 (Version 1)
Quarter: 2013Q2

REPORT INFORMATION
  Report Type: Spontaneous
  Country: DE (occurrence: DE)
  Receive Date: 20130517
  Receipt Date: 20130517
  Transmission Date: 20140414
  Serious: Yes (Other)
  Sender: FDA-Public Use
  Company Number: DE-UCBSA-085653

PATIENT
  Sex: Female

DRUGS (2)
  1. LEVETIRACETAM [Suspect]
     Indication: CONVULSION
     Dosage: 1-0-1
     Dates: start: 201005
  2. LEVETIRACETAM [Suspect]
     Indication: CONVULSION
     Dates: start: 201201, end: 2012

REACTIONS (3)
  - Glioma [Unknown]
  - Convulsion [Recovered/Resolved]
  - Inappropriate schedule of drug administration [Unknown]
